FAERS Safety Report 4980030-1 (Version None)
Quarter: 2006Q2

REPORT INFORMATION
  Report Type: 
  Country: None (occurrence: None)
  Receive Date: 20060421
  Receipt Date: 20050321
  Transmission Date: 20061013
  Serious: Yes (Other)
  Sender: FDA-Public Use
  Company Number: US-MERCK-0503USA03952

PATIENT
  Age: 72 Year
  Sex: Female
  Weight: 62 kg

DRUGS (2)
  1. VIOXX [Suspect]
     Indication: ARTHRALGIA
     Route: 048
     Dates: start: 20020204, end: 20041101
  2. VIOXX [Suspect]
     Indication: BACK PAIN
     Route: 048
     Dates: start: 20020204, end: 20041101

REACTIONS (5)
  - CEREBROVASCULAR ACCIDENT [None]
  - LACUNAR INFARCTION [None]
  - OCULAR VASCULAR DISORDER [None]
  - ORTHOSTATIC HYPOTENSION [None]
  - VISION BLURRED [None]
